FAERS Safety Report 6381561-2 (Version None)
Quarter: 2009Q3

REPORT INFORMATION
  Report Type: 
  Country: None (occurrence: None)
  Receive Date: 20090925
  Receipt Date: 20090921
  Transmission Date: 20100115
  Serious: Yes (Hospitalization)
  Sender: FDA-Public Use
  Company Number: 2009SP026254

PATIENT
  Age: 60 Year
  Sex: Female
  Weight: 98 kg

DRUGS (4)
  1. DIPROSPAN (BETAMETHASONE SODIUM PHOSPHATE/DIPROPIONATE) [Suspect]
     Indication: TENDONITIS
     Dosage: 14 MG; IM
     Route: 030
     Dates: start: 20040416, end: 20090901
  2. NEXIUM [Concomitant]
  3. PINEX /00020001/ [Concomitant]
  4. TODOLAC [Concomitant]

REACTIONS (3)
  - ANAPHYLACTIC REACTION [None]
  - BLOOD PRESSURE DECREASED [None]
  - HYPERVENTILATION [None]
